FAERS Safety Report 9441510 (Version 1)
Quarter: 2013Q3

REPORT INFORMATION
  Report Type: Spontaneous
  Country: TR (occurrence: TR)
  Receive Date: 20130805
  Receipt Date: 20130805
  Transmission Date: 20140515
  Serious: Yes (Hospitalization)
  Sender: FDA-Public Use
  Company Number: TR-PERRIGO-13TR007814

PATIENT
  Age: 29 Year
  Sex: Female

DRUGS (4)
  1. IBUPROFEN 200 MG 604 [Suspect]
     Indication: INTENTIONAL OVERDOSE
     Dosage: 4 G, UNK
     Route: 048
  2. QUETIAPINE [Suspect]
     Indication: INTENTIONAL OVERDOSE
     Dosage: 9 G, UNK
     Route: 048
  3. ESCITALOPRAM [Suspect]
     Indication: INTENTIONAL OVERDOSE
     Dosage: 280 MG, UNK
     Route: 048
  4. AMOXICILLIN [Suspect]
     Indication: INTENTIONAL OVERDOSE
     Dosage: 5 G, UNK
     Route: 048

REACTIONS (6)
  - Coma [Recovered/Resolved]
  - Depressed level of consciousness [Recovered/Resolved]
  - Tachycardia [Recovered/Resolved]
  - Hypotension [Recovered/Resolved]
  - Disorientation [Recovered/Resolved]
  - Intentional overdose [Recovered/Resolved]
